FAERS Safety Report 24373098 (Version 2)
Quarter: 2024Q4

REPORT INFORMATION
  Report Type: Spontaneous
  Country: CO (occurrence: CO)
  Receive Date: 20240927
  Receipt Date: 20241002
  Transmission Date: 20250114
  Serious: Yes (Hospitalization)
  Sender: BIOMARIN
  Company Number: CO-BIOMARINAP-CO-2024-159911

PATIENT

DRUGS (6)
  1. NAGLAZYME [Suspect]
     Active Substance: GALSULFASE
     Indication: Mucopolysaccharidosis VI
     Dosage: 15 MILLIGRAM, QW
     Route: 042
     Dates: start: 20230913
  2. SPIRONOLACTONE [Concomitant]
     Active Substance: SPIRONOLACTONE
     Indication: Product used for unknown indication
     Dosage: UNK, QD
  3. FUROSEMIDE [Concomitant]
     Active Substance: FUROSEMIDE
     Indication: Product used for unknown indication
     Dosage: UNK, QD
  4. ENALAPRIL [Concomitant]
     Active Substance: ENALAPRIL
     Indication: Product used for unknown indication
     Dosage: UNK, QD
  5. FLUTICASONE FUROATE [Concomitant]
     Active Substance: FLUTICASONE FUROATE
     Indication: Product used for unknown indication
     Dosage: UNK, QD
  6. FEXOFENADINE [Concomitant]
     Active Substance: FEXOFENADINE HYDROCHLORIDE
     Indication: Product used for unknown indication
     Dosage: UNK, QD
     Route: 048

REACTIONS (8)
  - Tonsillar hypertrophy [Unknown]
  - Adenoidal disorder [Unknown]
  - Nasal turbinate abnormality [Unknown]
  - Excessive cerumen production [Unknown]
  - Obstructive sleep apnoea syndrome [Unknown]
  - Pyrexia [Recovered/Resolved]
  - Otorrhoea [Unknown]
  - Ear pain [Unknown]

NARRATIVE: CASE EVENT DATE: 20240812
